FAERS Safety Report 7437520-1 (Version None)
Quarter: 2011Q2

REPORT INFORMATION
  Report Type: 
  Country: None (occurrence: None)
  Receive Date: 20110426
  Receipt Date: 20110422
  Transmission Date: 20111010
  Serious: Yes (Other)
  Sender: FDA-Public Use
  Company Number: JP-PFIZER INC-2011087502

PATIENT

DRUGS (1)
  1. AZULFIDINE [Suspect]
     Route: 048

REACTIONS (3)
  - LIVER DISORDER [None]
  - DRUG ERUPTION [None]
  - INTERSTITIAL LUNG DISEASE [None]
